FAERS Safety Report 6927889-6 (Version None)
Quarter: 2010Q3

REPORT INFORMATION
  Report Type: 
  Country: None (occurrence: None)
  Receive Date: 20100817
  Receipt Date: 20100803
  Transmission Date: 20110219
  Serious: Yes (Life-Threatening, Hospitalization, Other)
  Sender: FDA-Public Use
  Company Number: DE-ABBOTT-10P-062-0661613-00

PATIENT
  Sex: Female
  Weight: 63 kg

DRUGS (8)
  1. HUMIRA [Suspect]
     Indication: PSORIATIC ARTHROPATHY
     Route: 065
     Dates: end: 20100301
  2. SUFENTA PERF. [Concomitant]
     Indication: PRODUCT USED FOR UNKNOWN INDICATION
  3. PROPOFO PERF. [Concomitant]
     Indication: PRODUCT USED FOR UNKNOWN INDICATION
  4. SELENASE [Concomitant]
     Indication: PRODUCT USED FOR UNKNOWN INDICATION
  5. ACTRAPID PERFUSOR [Concomitant]
     Indication: PRODUCT USED FOR UNKNOWN INDICATION
     Dosage: ACCORDING TO BLOOD GLUCOSE
  6. DIFLUCAN [Concomitant]
     Indication: PRODUCT USED FOR UNKNOWN INDICATION
     Dosage: BID, MORNING AND EVENING
  7. PANTOZOL 40 [Concomitant]
     Indication: PRODUCT USED FOR UNKNOWN INDICATION
     Dosage: BID, MORNING AND EVENING
  8. FRAGMIN [Concomitant]
     Indication: PRODUCT USED FOR UNKNOWN INDICATION
     Dosage: OPD EVENING
     Route: 058

REACTIONS (16)
  - BLOOD PRESSURE DECREASED [None]
  - C-REACTIVE PROTEIN INCREASED [None]
  - CANDIDIASIS [None]
  - DYSPHAGIA [None]
  - LOCALISED INFECTION [None]
  - MULTI-ORGAN FAILURE [None]
  - NECROTISING FASCIITIS [None]
  - ORAL DISORDER [None]
  - POLYNEUROPATHY [None]
  - PROCALCITONIN INCREASED [None]
  - SHOCK [None]
  - STAPHYLOCOCCAL INFECTION [None]
  - STREPTOCOCCAL SEPSIS [None]
  - TACHYCARDIA [None]
  - TOXIC SHOCK SYNDROME [None]
  - WHITE BLOOD CELL COUNT INCREASED [None]
